FAERS Safety Report 6598073-3 (Version None)
Quarter: 2010Q1

REPORT INFORMATION
  Report Type: 
  Country: None (occurrence: None)
  Receive Date: 20100216
  Receipt Date: 20100203
  Transmission Date: 20100710
  Serious: Yes (Hospitalization)
  Sender: FDA-Public Use
  Company Number: 95040

PATIENT
  Age: 35 Year
  Sex: Female

DRUGS (1)
  1. LEVOTHYROXINE SODIUM [Suspect]
     Indication: THYROIDITIS
     Dosage: 100 ?G DAILY AND 300?G DAILY

REACTIONS (12)
  - BLOOD PRESSURE INCREASED [None]
  - BLOOD THYROID STIMULATING HORMONE DECREASED [None]
  - CARDIOLIPIN ANTIBODY POSITIVE [None]
  - CHOREOATHETOSIS [None]
  - DRUG ABUSE [None]
  - DRUG EXPOSURE DURING PREGNANCY [None]
  - HYPERHIDROSIS [None]
  - HYPERTHYROIDISM [None]
  - PREGNANCY [None]
  - TACHYCARDIA [None]
  - THYROXINE INCREASED [None]
  - WEIGHT DECREASED [None]
